FAERS Safety Report 7400310-X (Version None)
Quarter: 2011Q2

REPORT INFORMATION
  Report Type: 
  Country: None (occurrence: None)
  Receive Date: 20110407
  Receipt Date: 20110329
  Transmission Date: 20111010
  Serious: Yes (Disabling)
  Sender: FDA-Public Use
  Company Number: ZA-ASTRAZENECA-2011SE18161

PATIENT
  Age: 66 Year
  Sex: Female
  Weight: 64 kg

DRUGS (2)
  1. CAPTOPRIL [Concomitant]
     Indication: HYPERTENSION
  2. CRESTOR [Suspect]
     Indication: LOW DENSITY LIPOPROTEIN INCREASED
     Route: 048
     Dates: start: 20080101, end: 20110101

REACTIONS (2)
  - WEIGHT INCREASED [None]
  - INSOMNIA [None]
